FAERS Safety Report 20899076 (Version 5)
Quarter: 2022Q3

REPORT INFORMATION
  Report Type: Spontaneous
  Country: US (occurrence: US)
  Receive Date: 20220601
  Receipt Date: 20220817
  Transmission Date: 20221027
  Serious: Yes (Other)
  Sender: FDA-Public Use
  Company Number: US-BRISTOL-MYERS SQUIBB COMPANY-2022-034511

PATIENT
  Age: 82 Year
  Sex: Male
  Weight: 75.29 kg

DRUGS (13)
  1. REVLIMID [Suspect]
     Active Substance: LENALIDOMIDE
     Indication: Plasma cell myeloma
     Dosage: FOR ALMOST 2 YEARS
     Route: 048
  2. REVLIMID [Suspect]
     Active Substance: LENALIDOMIDE
     Indication: Plasma cell myeloma
     Route: 048
     Dates: start: 20220412
  3. REVLIMID [Suspect]
     Active Substance: LENALIDOMIDE
     Dosage: ONCE DAILY FOR 21 DAYS ON AND 7 DAYS OFF
     Route: 048
     Dates: start: 20220413
  4. REVLIMID [Suspect]
     Active Substance: LENALIDOMIDE
     Dosage: DAILY ON DAYS 1-21 AND THEN OFF FOR 7 DAYS
     Route: 048
     Dates: start: 202205
  5. REVLIMID [Suspect]
     Active Substance: LENALIDOMIDE
     Route: 048
     Dates: start: 20220413
  6. REVLIMID [Suspect]
     Active Substance: LENALIDOMIDE
     Route: 065
     Dates: start: 20220727
  7. REVLIMID [Suspect]
     Active Substance: LENALIDOMIDE
     Route: 065
     Dates: end: 20220713
  8. VELCADE [Suspect]
     Active Substance: BORTEZOMIB
     Indication: Product used for unknown indication
     Route: 065
  9. AMIODARONE [Concomitant]
     Active Substance: AMIODARONE
     Indication: Product used for unknown indication
     Route: 065
  10. METOPROLOL [Concomitant]
     Active Substance: METOPROLOL
     Indication: Product used for unknown indication
     Route: 065
  11. XARELTO [Concomitant]
     Active Substance: RIVAROXABAN
     Indication: Product used for unknown indication
     Route: 065
  12. CRESTOR [Concomitant]
     Active Substance: ROSUVASTATIN CALCIUM
     Indication: Product used for unknown indication
     Route: 065
  13. DEXAMETHASONE [Concomitant]
     Active Substance: DEXAMETHASONE
     Indication: Product used for unknown indication
     Route: 065

REACTIONS (16)
  - General physical health deterioration [Unknown]
  - Loss of consciousness [Unknown]
  - Neuropathy peripheral [Unknown]
  - Amnesia [Not Recovered/Not Resolved]
  - Feeling cold [Unknown]
  - Hyperhidrosis [Unknown]
  - Visual impairment [Unknown]
  - Stomatitis [Unknown]
  - Red blood cell count decreased [Unknown]
  - Diarrhoea [Unknown]
  - Dehydration [Unknown]
  - Weight decreased [Unknown]
  - Somnolence [Unknown]
  - Gait disturbance [Unknown]
  - Feeling abnormal [Unknown]
  - Dizziness [Not Recovered/Not Resolved]
